FAERS Safety Report 10269699 (Version 1)
Quarter: 2014Q2

REPORT INFORMATION
  Report Type: Spontaneous
  Country: US (occurrence: None)
  Receive Date: 20140626
  Receipt Date: 20140626
  Transmission Date: 20141212
  Serious: Yes (Other)
  Sender: FDA-Public Use
  Company Number: None

PATIENT
  Age: 54 Year
  Sex: Female
  Weight: 56.7 kg

DRUGS (1)
  1. FLOVENT HFA [Suspect]
     Indication: ASTHMA
     Dosage: 2 PUFFS TWICE DAILY TAKEN BY MOUTH
     Route: 048
     Dates: start: 20140225, end: 20140302

REACTIONS (1)
  - Asthma [None]
